FAERS Safety Report 5385670-6 (Version None)
Quarter: 2007Q3

REPORT INFORMATION
  Report Type: 
  Country: None (occurrence: None)
  Receive Date: 20070712
  Receipt Date: 20070702
  Transmission Date: 20080115
  Serious: Yes (Death, Hospitalization, Other)
  Sender: FDA-Public Use
  Company Number: US-PFIZER INC-2006146498

PATIENT
  Sex: Male
  Weight: 81.6 kg

DRUGS (4)
  1. BEXTRA [Suspect]
     Indication: BACK PAIN
     Route: 048
     Dates: start: 20040901, end: 20041120
  2. VIOXX [Suspect]
     Indication: BACK PAIN
     Route: 048
     Dates: start: 20030926, end: 20040923
  3. OXYCONTIN [Concomitant]
     Dates: start: 20031126, end: 20041120
  4. OXYCODONE HCL [Concomitant]
     Dates: start: 20030901, end: 20041120

REACTIONS (1)
  - MYOCARDIAL INFARCTION [None]
